FAERS Safety Report 7377686-5 (Version None)
Quarter: 2011Q1

REPORT INFORMATION
  Report Type: 
  Country: None (occurrence: None)
  Receive Date: 20110328
  Receipt Date: 20110322
  Transmission Date: 20110831
  Serious: Yes (Life-Threatening)
  Sender: FDA-Public Use
  Company Number: JP-ASTRAZENECA-2011SE14926

PATIENT
  Age: 85 Year
  Sex: Male
  Weight: 68 kg

DRUGS (2)
  1. MARCAINE [Suspect]
     Indication: SPINAL ANAESTHESIA
     Route: 029
     Dates: start: 20091028, end: 20091028
  2. CARBOCAIN INJ [Concomitant]
     Indication: LOCAL ANAESTHESIA
     Route: 058
     Dates: start: 20091028, end: 20091028

REACTIONS (1)
  - PULSELESS ELECTRICAL ACTIVITY [None]
